FAERS Safety Report 11539509 (Version 2)
Quarter: 2015Q4

REPORT INFORMATION
  Report Type: Spontaneous
  Country: US (occurrence: US)
  Receive Date: 20150923
  Receipt Date: 20151105
  Transmission Date: 20160304
  Serious: Yes (Hospitalization, Other)
  Sender: FDA-Public Use
  Company Number: US-ACTAVIS-2015-20192

PATIENT
  Age: 23 Month
  Sex: Male
  Weight: 12.6 kg

DRUGS (1)
  1. BUPRENORPHINE HYDROCHLORIDE AND NALOXONE HYDROCHLORIDE DIHYDRATE [Suspect]
     Active Substance: BUPRENORPHINE\NALOXONE
     Indication: ACCIDENTAL EXPOSURE TO PRODUCT
     Dosage: UNK
     Route: 048

REACTIONS (5)
  - Respiratory depression [Recovered/Resolved]
  - Vomiting [Recovered/Resolved]
  - Miosis [Recovered/Resolved]
  - Lethargy [Recovered/Resolved]
  - Accidental exposure to product [Recovered/Resolved]
